FAERS Safety Report 16417285 (Version 3)
Quarter: 2019Q3

REPORT INFORMATION
  Report Type: Report from Study
  Country: US (occurrence: US)
  Receive Date: 20190611
  Receipt Date: 20190710
  Transmission Date: 20191004
  Serious: Yes (Hospitalization)
  Sender: FDA-Public Use
  Company Number: US-ACTELION-A-NJ2018-175098

PATIENT
  Age: 66 Year
  Sex: Female
  Weight: 117.01 kg

DRUGS (8)
  1. VELETRI [Suspect]
     Active Substance: EPOPROSTENOL
     Dosage: 20.5 NG/KG, PER MIN
     Route: 042
  2. VELETRI [Suspect]
     Active Substance: EPOPROSTENOL
     Dosage: 9 NG/KG, PER MIN
     Route: 042
  3. ADCIRCA [Concomitant]
     Active Substance: TADALAFIL
  4. VELETRI [Suspect]
     Active Substance: EPOPROSTENOL
     Indication: PULMONARY ARTERIAL HYPERTENSION
     Dosage: 6 NG/KG, PER MIN
     Route: 042
     Dates: start: 20180620
  5. VELETRI [Suspect]
     Active Substance: EPOPROSTENOL
     Dosage: 8 NG/KG, PER MIN
     Route: 042
     Dates: start: 20180715, end: 20180718
  6. VELETRI [Suspect]
     Active Substance: EPOPROSTENOL
     Dosage: 7 NG/KG, PER MIN
     Route: 042
     Dates: start: 20180719
  7. VELETRI [Suspect]
     Active Substance: EPOPROSTENOL
     Dosage: 27.3 NG/KG, PER MIN
     Route: 042
  8. OPSUMIT [Concomitant]
     Active Substance: MACITENTAN

REACTIONS (24)
  - Catheter site pruritus [Unknown]
  - Hot flush [Unknown]
  - Weight decreased [Unknown]
  - Vomiting [Unknown]
  - Catheter site erythema [Unknown]
  - Abdominal pain [Unknown]
  - Nausea [Unknown]
  - Pruritus [Unknown]
  - Headache [Unknown]
  - Pain in jaw [Unknown]
  - Diarrhoea [Unknown]
  - Malaise [Unknown]
  - Muscle spasms [Unknown]
  - Gastrectomy [Unknown]
  - Flushing [Unknown]
  - Back pain [Unknown]
  - Pain in extremity [Recovering/Resolving]
  - Neuralgia [Unknown]
  - Rash [Unknown]
  - Blood potassium decreased [Unknown]
  - Influenza [Unknown]
  - Metabolic surgery [Unknown]
  - Therapeutic response decreased [Unknown]
  - Nasopharyngitis [Unknown]

NARRATIVE: CASE EVENT DATE: 20180626
